FAERS Safety Report 10541367 (Version 1)
Quarter: 2014Q4

REPORT INFORMATION
  Report Type: Spontaneous
  Country: US (occurrence: US)
  Receive Date: 20141024
  Receipt Date: 20141024
  Transmission Date: 20150529
  Serious: No
  Sender: FDA-Public Use
  Company Number: US-TEVA-517296USA

PATIENT
  Sex: Female
  Weight: 71.73 kg

DRUGS (2)
  1. NUVIGIL [Suspect]
     Active Substance: ARMODAFINIL
     Indication: NARCOLEPSY
  2. PROVIGIL [Suspect]
     Active Substance: MODAFINIL

REACTIONS (4)
  - Somnolence [Not Recovered/Not Resolved]
  - Psoriasis [Recovered/Resolved]
  - Ocular hyperaemia [Not Recovered/Not Resolved]
  - Rash [Not Recovered/Not Resolved]
